FAERS Safety Report 8000761-9 (Version None)
Quarter: 2011Q4

REPORT INFORMATION
  Report Type: 
  Country: None (occurrence: None)
  Receive Date: 20111222
  Receipt Date: 20111219
  Transmission Date: 20120403
  Serious: Yes (Death, Hospitalization)
  Sender: FDA-Public Use
  Company Number: US-BRISTOL-MYERS SQUIBB COMPANY-16306342

PATIENT

DRUGS (1)
  1. YERVOY [Suspect]

REACTIONS (2)
  - PYREXIA [None]
  - DEATH [None]
